FAERS Safety Report 8847990 (Version 2)
Quarter: 2015Q1

REPORT INFORMATION
  Report Type: Report from Study
  Country: US (occurrence: US)
  Receive Date: 20121018
  Receipt Date: 20150126
  Transmission Date: 20150721
  Serious: Yes (Other)
  Sender: FDA-Public Use
  Company Number: US-ROCHE-1140996

PATIENT
  Sex: Female
  Weight: 29 kg

DRUGS (12)
  1. PROTROPIN [Suspect]
     Active Substance: SOMATREM
     Route: 042
  2. DEPAKOTE [Concomitant]
     Active Substance: DIVALPROEX SODIUM
  3. ESTINYL [Concomitant]
     Active Substance: ETHINYL ESTRADIOL
     Route: 042
  4. PROTROPIN [Suspect]
     Active Substance: SOMATREM
     Route: 042
  5. PROTROPIN [Suspect]
     Active Substance: SOMATREM
     Route: 058
     Dates: start: 19971001
  6. PROTROPIN [Suspect]
     Active Substance: SOMATREM
     Route: 058
     Dates: start: 19980112
  7. PROTROPIN [Suspect]
     Active Substance: SOMATREM
     Route: 058
     Dates: start: 19980622
  8. PROTROPIN [Suspect]
     Active Substance: SOMATREM
     Indication: GONADAL DYSGENESIS
     Route: 042
     Dates: start: 19921110
  9. TRAZODONE [Concomitant]
     Active Substance: TRAZODONE HYDROCHLORIDE
  10. PROTROPIN [Suspect]
     Active Substance: SOMATREM
     Indication: TURNER^S SYNDROME
     Route: 042
     Dates: start: 19921028
  11. PROTROPIN [Suspect]
     Active Substance: SOMATREM
     Route: 058
     Dates: start: 19990625
  12. ZOLOFT [Concomitant]
     Active Substance: SERTRALINE HYDROCHLORIDE

REACTIONS (8)
  - Vaginal discharge [Recovered/Resolved]
  - Tenderness [Unknown]
  - Osteopenia [Unknown]
  - Dyspepsia [Recovered/Resolved]
  - Growth retardation [Unknown]
  - Drug dose omission [Unknown]
  - Sinusitis [Unknown]
  - Nasal mucosal disorder [Unknown]
